FAERS Safety Report 24194134 (Version 2)
Quarter: 2024Q3

REPORT INFORMATION
  Report Type: Spontaneous
  Country: US (occurrence: US)
  Receive Date: 20240809
  Receipt Date: 20240822
  Transmission Date: 20241017
  Serious: Yes (Other)
  Sender: BAYER
  Company Number: US-BAYER-2024A111595

PATIENT
  Age: 24 Year
  Sex: Female
  Weight: 82.55 kg

DRUGS (2)
  1. MIRENA [Suspect]
     Active Substance: LEVONORGESTREL
     Indication: Contraception
     Dosage: 20?G/DAY
     Route: 015
     Dates: start: 20240603, end: 20240603
  2. MIRENA [Suspect]
     Active Substance: LEVONORGESTREL
     Indication: Heavy menstrual bleeding

REACTIONS (3)
  - Uterine perforation [Unknown]
  - Complication of device insertion [None]
  - Abdominal pain lower [Unknown]

NARRATIVE: CASE EVENT DATE: 20240603
